FAERS Safety Report 8816005 (Version 3)
Quarter: 2012Q4

REPORT INFORMATION
  Report Type: 
  Country: GB (occurrence: GB)
  Receive Date: 20120928
  Receipt Date: 20121108
  Transmission Date: 20130627
  Serious: Yes (Other)
  Sender: FDA-Public Use
  Company Number: GB-BAYER-2012-099073

PATIENT
  Age: 40 Year
  Sex: Female
  Weight: 53 kg

DRUGS (2)
  1. MIRENA [Suspect]
     Indication: HEAVY PERIODS
     Dosage: 20 mcg/24hr, CONT
     Route: 015
     Dates: start: 201008
  2. MIRENA [Suspect]
     Indication: ANAEMIA

REACTIONS (3)
  - Pyelocaliectasis [Not Recovered/Not Resolved]
  - Ovarian cyst [Recovered/Resolved]
  - Blood bilirubin increased [None]
